FAERS Safety Report 26043581 (Version 2)
Quarter: 2025Q4

REPORT INFORMATION
  Report Type: Spontaneous
  Country: EU (occurrence: EU)
  Receive Date: 20251113
  Receipt Date: 20251209
  Transmission Date: 20260119
  Serious: Yes (Other)
  Sender: ABBVIE
  Company Number: EU-ABBVIE-6539242

PATIENT
  Age: 67 Year
  Sex: Female

DRUGS (6)
  1. VENETOCLAX [Suspect]
     Active Substance: VENETOCLAX
     Indication: Acute myeloid leukaemia recurrent
     Route: 048
     Dates: start: 20250605, end: 20250702
  2. VENETOCLAX [Suspect]
     Active Substance: VENETOCLAX
     Indication: Acute myeloid leukaemia recurrent
     Dosage: SECOND VEN/AZA CYCLE
     Route: 048
     Dates: start: 2025
  3. AZACITIDINE [Concomitant]
     Active Substance: AZACITIDINE
     Indication: Acute myeloid leukaemia recurrent
     Dates: start: 20250324, end: 20250330
  4. AZACITIDINE [Concomitant]
     Active Substance: AZACITIDINE
     Indication: Acute myeloid leukaemia recurrent
     Dates: start: 20250429, end: 20250505
  5. LYMPHOCYTES [Concomitant]
     Active Substance: LYMPHOCYTES
     Indication: Acute myeloid leukaemia recurrent
     Dosage: 0,5X10^7/KG CD3, LAST ADMIN:2025
     Dates: start: 20250506
  6. LYMPHOCYTES [Concomitant]
     Active Substance: LYMPHOCYTES
     Indication: Acute myeloid leukaemia recurrent
     Dosage: 0,5X10^7/KG CD3
     Dates: start: 20250612

REACTIONS (4)
  - Acute graft versus host disease in intestine [Unknown]
  - Diarrhoea [Recovering/Resolving]
  - White blood cell count decreased [Recovered/Resolved]
  - Neutrophil count decreased [Recovered/Resolved]

NARRATIVE: CASE EVENT DATE: 20250625
